FAERS Safety Report 8276828-7 (Version None)
Quarter: 2012Q2

REPORT INFORMATION
  Report Type: 
  Country: None (occurrence: None)
  Receive Date: 20120409
  Receipt Date: 20120329
  Transmission Date: 20120825
  Serious: Yes (Other)
  Sender: FDA-Public Use
  Company Number: 2011SP060107

PATIENT
  Age: 29 Year
  Sex: Female

DRUGS (6)
  1. DISULFIRAM [Suspect]
     Indication: PRODUCT USED FOR UNKNOWN INDICATION
     Dosage: 500 MG;PO
     Route: 048
     Dates: start: 20111020, end: 20111122
  2. ESCITALOPRAM [Suspect]
     Indication: PRODUCT USED FOR UNKNOWN INDICATION
     Dosage: PO
     Route: 048
     Dates: start: 20110601, end: 20111122
  3. DESLORATADINE [Concomitant]
  4. AUGMENTIN '125' [Concomitant]
  5. ESTRADIOL VALERATE/DIENOGEST [Suspect]
     Indication: PRODUCT USED FOR UNKNOWN INDICATION
     Dosage: 1 DF;QD;PO
     Route: 048
     Dates: start: 20110501, end: 20111120
  6. CELESTAMINE TAB [Suspect]
     Indication: RHINITIS
     Dosage: 1 DF;QD;PO
     Route: 048
     Dates: start: 20111114, end: 20111116

REACTIONS (4)
  - ASTHENIA [None]
  - AGRANULOCYTOSIS [None]
  - VIRAL UPPER RESPIRATORY TRACT INFECTION [None]
  - INFECTION [None]
